FAERS Safety Report 14972087 (Version 1)
Quarter: 2018Q2

REPORT INFORMATION
  Report Type: Spontaneous
  Country: US (occurrence: US)
  Receive Date: 20180605
  Receipt Date: 20180605
  Transmission Date: 20180711
  Serious: Yes (Hospitalization)
  Sender: FDA-Public Use
  Company Number: US-ACCORD-067715

PATIENT
  Age: 65 Year
  Sex: Female
  Weight: 66.95 kg

DRUGS (13)
  1. MELOXICAM. [Concomitant]
     Active Substance: MELOXICAM
     Dates: start: 2015
  2. SENNALAX-S [Concomitant]
     Active Substance: DOCUSATE SODIUM\SENNOSIDES
     Dates: start: 2016
  3. LYRICA [Concomitant]
     Active Substance: PREGABALIN
     Dates: start: 2016
  4. LACTULOSE. [Concomitant]
     Active Substance: LACTULOSE
     Dates: start: 2016
  5. HYDROCHLOROTHIAZIDE. [Concomitant]
     Active Substance: HYDROCHLOROTHIAZIDE
     Dates: start: 2016
  6. LOSARTAN. [Concomitant]
     Active Substance: LOSARTAN
     Dates: start: 2016
  7. TOPOTECAN [Suspect]
     Active Substance: TOPOTECAN HYDROCHLORIDE
     Indication: SMALL CELL LUNG CANCER
     Dosage: STARTED CYCLE 6 WITH 2.6 MG TOTAL DAILY DOSE (TDD) ON AN UNKNOWN DATE
     Route: 041
     Dates: start: 20171226
  8. HYDROCODONE BITARTRATE/PARACETAMOL [Concomitant]
     Dates: start: 2016
  9. VITAMIN D [Concomitant]
     Active Substance: CHOLECALCIFEROL
     Dates: start: 2015
  10. HYDRALAZINE [Concomitant]
     Active Substance: HYDRALAZINE HYDROCHLORIDE
     Dates: start: 2016
  11. DEXAMETHASONE. [Concomitant]
     Active Substance: DEXAMETHASONE
     Dates: start: 20180409, end: 20180409
  12. GRANISETRON [Concomitant]
     Active Substance: GRANISETRON
     Dates: start: 20180409, end: 20180409
  13. LIDOCAINE. [Concomitant]
     Active Substance: LIDOCAINE
     Dates: start: 20171108

REACTIONS (1)
  - Osteoarthritis [Not Recovered/Not Resolved]

NARRATIVE: CASE EVENT DATE: 20180504
